FAERS Safety Report 7932811-X (Version None)
Quarter: 2011Q4

REPORT INFORMATION
  Report Type: 
  Country: None (occurrence: None)
  Receive Date: 20111122
  Receipt Date: 20111118
  Transmission Date: 20120403
  Serious: Yes (Other)
  Sender: FDA-Public Use
  Company Number: US-PFIZER INC-2009179749

PATIENT
  Sex: Male

DRUGS (2)
  1. SPIRIVA [Suspect]
  2. GLUCOTROL XL [Suspect]
     Dosage: 2.5 MG, UNK

REACTIONS (3)
  - MICROALBUMINURIA [None]
  - GLOMERULAR FILTRATION RATE DECREASED [None]
  - PROSTATOMEGALY [None]
